FAERS Safety Report 17529706 (Version 2)
Quarter: 2020Q2

REPORT INFORMATION
  Report Type: Spontaneous
  Country: AU (occurrence: AU)
  Receive Date: 20200312
  Receipt Date: 20200408
  Transmission Date: 20200713
  Serious: Yes (Hospitalization, Other)
  Sender: FDA-Public Use
  Company Number: AU-ROCHE-2565212

PATIENT
  Age: 23 Year
  Sex: Female

DRUGS (7)
  1. AVASTIN [Suspect]
     Active Substance: BEVACIZUMAB
     Indication: OVARIAN CANCER METASTATIC
     Route: 065
  2. CAELYX [Suspect]
     Active Substance: DOXORUBICIN HYDROCHLORIDE
     Indication: OVARIAN CANCER METASTATIC
     Route: 065
     Dates: start: 201708
  3. CARBOPLATIN. [Suspect]
     Active Substance: CARBOPLATIN
     Indication: OVARIAN CANCER METASTATIC
     Route: 065
     Dates: start: 201708
  4. ARIMIDEX [Suspect]
     Active Substance: ANASTROZOLE
     Indication: OVARIAN CANCER METASTATIC
     Route: 065
  5. CISPLATIN. [Suspect]
     Active Substance: CISPLATIN
     Indication: OVARIAN CANCER METASTATIC
     Route: 065
     Dates: start: 201802
  6. GEMCITABINE. [Suspect]
     Active Substance: GEMCITABINE
     Indication: OVARIAN CANCER METASTATIC
     Route: 065
     Dates: start: 201506
  7. EXEMESTANE. [Suspect]
     Active Substance: EXEMESTANE
     Indication: OVARIAN CANCER METASTATIC
     Route: 065
     Dates: start: 201603

REACTIONS (9)
  - Vulvovaginal swelling [Unknown]
  - Metastases to abdominal wall [Unknown]
  - Malignant neoplasm progression [Unknown]
  - Ascites [Unknown]
  - Ovarian cancer metastatic [Unknown]
  - Intestinal obstruction [Recovered/Resolved]
  - Metastases to lung [Unknown]
  - Peritoneal disorder [Unknown]
  - Autoimmune hepatitis [Unknown]

NARRATIVE: CASE EVENT DATE: 201603
